FAERS Safety Report 20473905 (Version 1)
Quarter: 2022Q1

REPORT INFORMATION
  Report Type: Spontaneous
  Country: IN (occurrence: IN)
  Receive Date: 20220215
  Receipt Date: 20220215
  Transmission Date: 20220423
  Serious: Yes (Other)
  Sender: FDA-Public Use
  Company Number: CLT-IN-2022-0017-223710

PATIENT
  Age: 61 Year
  Sex: Male

DRUGS (3)
  1. LINEZOLID [Suspect]
     Active Substance: LINEZOLID
     Indication: Product used for unknown indication
     Dosage: 600 MG TWICE DAILY
     Route: 050
  2. amoxycillin and clavulanic acid [Concomitant]
     Route: 050
  3. ACETAMINOPHEN [Concomitant]
     Active Substance: ACETAMINOPHEN
     Route: 050

REACTIONS (2)
  - Hallucination, auditory [Recovered/Resolved]
  - Dysgeusia [Recovered/Resolved]
